FAERS Safety Report 13563824 (Version 2)
Quarter: 2017Q2

REPORT INFORMATION
  Report Type: Report from Study
  Country: BR (occurrence: BR)
  Receive Date: 20170519
  Receipt Date: 20170523
  Transmission Date: 20170830
  Serious: Yes (Other)
  Sender: FDA-Public Use
  Company Number: BR-JNJFOC-20170515545

PATIENT
  Age: 54 Year
  Sex: Female
  Weight: 56 kg

DRUGS (5)
  1. TECNOMET [Concomitant]
     Active Substance: METHOTREXATE
     Route: 065
  2. OMEPRAZOLE. [Concomitant]
     Active Substance: OMEPRAZOLE
     Route: 065
  3. FOLIC ACID. [Concomitant]
     Active Substance: FOLIC ACID
     Route: 065
  4. PREDNISONE. [Concomitant]
     Active Substance: PREDNISONE
     Route: 065
  5. SIMPONI [Suspect]
     Active Substance: GOLIMUMAB
     Indication: RHEUMATOID ARTHRITIS
     Route: 058
     Dates: start: 20170328, end: 201704

REACTIONS (4)
  - Rheumatoid arthritis [Not Recovered/Not Resolved]
  - Tuberculosis [Unknown]
  - Drug ineffective [Unknown]
  - Leprosy [Unknown]

NARRATIVE: CASE EVENT DATE: 201704
